FAERS Safety Report 7911105-2 (Version None)
Quarter: 2011Q4

REPORT INFORMATION
  Report Type: 
  Country: None (occurrence: None)
  Receive Date: 20111109
  Receipt Date: 20111025
  Transmission Date: 20120403
  Serious: Yes (Hospitalization, Other)
  Sender: FDA-Public Use
  Company Number: DSA_48114_2011

PATIENT
  Age: 39 Year
  Sex: Male

DRUGS (1)
  1. DILTIAZEM [Suspect]
     Indication: PRINZMETAL ANGINA
     Dosage: (100 MG QD ORAL)
     Route: 048

REACTIONS (2)
  - BRUGADA SYNDROME [None]
  - VENTRICULAR FIBRILLATION [None]
